FAERS Safety Report 7918381-0 (Version None)
Quarter: 2011Q4

REPORT INFORMATION
  Report Type: 
  Country: None (occurrence: None)
  Receive Date: 20111116
  Receipt Date: 20111108
  Transmission Date: 20120403
  Serious: Yes (Hospitalization)
  Sender: FDA-Public Use
  Company Number: US-US-EMD SERONO, INC.-232463J10USA

PATIENT
  Sex: Female

DRUGS (14)
  1. AMPYRA [Concomitant]
     Indication: FIBROMYALGIA
  2. TETRACYCLINE [Concomitant]
     Indication: DERMAL CYST
  3. COQ10 [Concomitant]
  4. CITALOPRAM HYDROBROMIDE [Concomitant]
     Indication: DEPRESSION
  5. VITAMIN B-12 [Concomitant]
  6. REBIF [Suspect]
     Indication: MULTIPLE SCLEROSIS
     Dates: start: 20080307
  7. HYDROCODONE BITARTRATE [Concomitant]
     Indication: FIBROMYALGIA
  8. BLACK CHERRY EXTRACT [Concomitant]
  9. ALPRAZOLAM [Concomitant]
     Indication: DEPRESSION
  10. MUCINEX [Concomitant]
     Indication: SINUS DISORDER
  11. CALCIUM WITH VITAMIN D [Concomitant]
  12. SUDAFED 12 HOUR [Concomitant]
     Indication: SINUS DISORDER
  13. BEE POLLEN [Concomitant]
  14. LOVAZA [Concomitant]

REACTIONS (2)
  - POSTOPERATIVE ADHESION [None]
  - OVARIAN CYST [None]
